FAERS Safety Report 17821508 (Version 1)
Quarter: 2020Q2

REPORT INFORMATION
  Report Type: Spontaneous
  Country: PL (occurrence: PL)
  Receive Date: 20200525
  Receipt Date: 20200525
  Transmission Date: 20200714
  Serious: Yes (Other)
  Sender: FDA-Public Use
  Company Number: NVSC2020PL140993

PATIENT
  Age: 74 Year
  Sex: Male

DRUGS (1)
  1. SANDOSTATIN LAR DEPOT [Suspect]
     Active Substance: OCTREOTIDE ACETATE
     Indication: NEUROENDOCRINE TUMOUR
     Dosage: 30 MG
     Route: 065
     Dates: start: 201501

REACTIONS (4)
  - Pancreatic neoplasm [Unknown]
  - Epistaxis [Unknown]
  - Dysmorphism [Unknown]
  - Venous thrombosis [Unknown]

NARRATIVE: CASE EVENT DATE: 201602
